FAERS Safety Report 6006931-3 (Version None)
Quarter: 2008Q4

REPORT INFORMATION
  Report Type: 
  Country: None (occurrence: None)
  Receive Date: 20081217
  Receipt Date: 20071121
  Transmission Date: 20090506
  Serious: No
  Sender: FDA-Public Use
  Company Number: US-ASTRAZENECA-2007UW26876

PATIENT
  Age: 48 Year
  Sex: Female

DRUGS (6)
  1. CRESTOR [Suspect]
     Route: 048
     Dates: start: 20071001
  2. PROCARDIA XL [Concomitant]
  3. COUMADIN [Concomitant]
  4. DIGOXIN [Concomitant]
  5. LASIX [Concomitant]
  6. ALDACTONE [Concomitant]

REACTIONS (2)
  - BLOOD CALCIUM INCREASED [None]
  - URINE CALCIUM [None]
